FAERS Safety Report 14658686 (Version 3)
Quarter: 2018Q2

REPORT INFORMATION
  Report Type: Report from Study
  Country: None (occurrence: US)
  Receive Date: 20180320
  Receipt Date: 20180402
  Transmission Date: 20180711
  Serious: Yes (Hospitalization, Other)
  Sender: FDA-Public Use
  Company Number: US-BAUSCH-BL-2018-007437

PATIENT
  Age: 22 Year
  Sex: Male
  Weight: 72.19 kg

DRUGS (33)
  1. JEVITY [Concomitant]
     Active Substance: DIETARY SUPPLEMENT
     Indication: PRODUCT USED FOR UNKNOWN INDICATION
     Dosage: 1.2 CAL, 2138 KCAL DAILY, 7.5 CANS DAILY
     Route: 065
  2. DEPAKENE [Concomitant]
     Active Substance: VALPROIC ACID
     Indication: PRODUCT USED FOR UNKNOWN INDICATION
     Dosage: 250 MG/5ML BY G TUBE, (625 MG TOTAL)
  3. KEPPRA [Concomitant]
     Active Substance: LEVETIRACETAM
     Indication: PRODUCT USED FOR UNKNOWN INDICATION
     Dosage: 1000 MG (10 ML) PGT, MORNING AND EVENING
     Route: 065
  4. Q-TUSSIN [Concomitant]
     Active Substance: GUAIFENESIN
     Indication: PRODUCT USED FOR UNKNOWN INDICATION
     Dosage: 100 MG/5 ML
     Route: 065
  5. BANZEL [Concomitant]
     Active Substance: RUFINAMIDE
     Indication: PRODUCT USED FOR UNKNOWN INDICATION
     Dosage: 20 ML QAM AND 30 ML QPM
     Route: 048
  6. XENAZINE [Suspect]
     Active Substance: TETRABENAZINE
     Dosage: 1 TABLET FOUR TIMES DAILY
     Route: 048
  7. DIASTAT ACUDIAL [Concomitant]
     Active Substance: DIAZEPAM
     Indication: SEIZURE
     Dosage: 12.5-15-17.5-20 MG KIT, SEIZURES LASTING 5 MINUTES OR FOR 2 OR MORE SEIZURES WITHIN 1 HOUR
     Route: 054
  8. CARNITOR [Concomitant]
     Active Substance: LEVOCARNITINE
     Indication: PRODUCT USED FOR UNKNOWN INDICATION
     Dosage: BY J-TUBE ROUTE, 10 ML (1000 MG TOTAL)
     Route: 065
  9. PEROXYL [Concomitant]
     Active Substance: HYDROGEN PEROXIDE
     Indication: PRODUCT USED FOR UNKNOWN INDICATION
     Route: 065
  10. DUONEB [Concomitant]
     Active Substance: ALBUTEROL SULFATE\IPRATROPIUM BROMIDE
     Indication: PRODUCT USED FOR UNKNOWN INDICATION
     Dosage: 0.5-2.5 MG/ML, NEBULIZER, USE AS NEEDED
     Route: 065
  11. LAMOTRIGINE. [Concomitant]
     Active Substance: LAMOTRIGINE
     Indication: PRODUCT USED FOR UNKNOWN INDICATION
  12. ONFI [Concomitant]
     Active Substance: CLOBAZAM
     Indication: PRODUCT USED FOR UNKNOWN INDICATION
     Dosage: 11 ML, TAKE 3CC AT 6AM, 2CC AT 12PM, 3CC AT 6PM AND 3CC AT 12AM, 3 DAY EMERG SUPPLY
     Route: 048
  13. COENZYME Q10 [Concomitant]
     Active Substance: UBIDECARENONE
     Indication: PRODUCT USED FOR UNKNOWN INDICATION
     Route: 065
  14. VALIUM [Concomitant]
     Active Substance: DIAZEPAM
     Indication: AGITATION
     Dosage: 5 MG/5 ML (1 MG/ML)
  15. VALIUM [Concomitant]
     Active Substance: DIAZEPAM
     Indication: HEART RATE
  16. BENADRYL ALLERGY [Concomitant]
     Active Substance: DIPHENHYDRAMINE HYDROCHLORIDE
     Indication: PRODUCT USED FOR UNKNOWN INDICATION
     Dosage: NIGHTLY
     Route: 065
  17. ACIDOPHILUS PROBIOTIC [Concomitant]
     Indication: PRODUCT USED FOR UNKNOWN INDICATION
     Dosage: AT 5:30 PM
     Route: 048
  18. XOPENEX [Concomitant]
     Active Substance: LEVALBUTEROL HYDROCHLORIDE
     Indication: PRODUCT USED FOR UNKNOWN INDICATION
     Dosage: 1.25 MG/3 ML, 1 AMPULE BY NEBULIZATION 3 TIMES A DAY AS NEEDED
     Route: 065
  19. SINGULAIR [Concomitant]
     Active Substance: MONTELUKAST SODIUM
     Indication: PRODUCT USED FOR UNKNOWN INDICATION
     Route: 065
  20. MIRALAX [Concomitant]
     Active Substance: POLYETHYLENE GLYCOL 3350
     Indication: CONSTIPATION
     Dosage: 17 GRAM/DOSE, DAILY AS NEEDED. 1/2 CAP IN 2-8 OZ FLUID
     Route: 048
  21. ACCUNEB [Concomitant]
     Active Substance: ALBUTEROL SULFATE
     Indication: PRODUCT USED FOR UNKNOWN INDICATION
     Route: 065
  22. SYMMETREL [Concomitant]
     Active Substance: AMANTADINE HYDROCHLORIDE
     Indication: PRODUCT USED FOR UNKNOWN INDICATION
     Dosage: 50 MG/5 ML, AT 8AM, 4PM AND 12AM
     Route: 048
  23. ROBITUSSIN DM [Concomitant]
     Active Substance: DEXTROMETHORPHAN HYDROBROMIDE\GUAIFENESIN
     Indication: PRODUCT USED FOR UNKNOWN INDICATION
     Dosage: 10-100 MG/5 ML
     Route: 065
  24. ATIVAN [Concomitant]
     Active Substance: LORAZEPAM
     Indication: AGITATION
     Dosage: BY J-TUBE ROUTE 2 TIMES A DAY AS NEEDED
     Route: 065
  25. XENAZINE [Suspect]
     Active Substance: TETRABENAZINE
     Indication: NEURONAL CEROID LIPOFUSCINOSIS
     Route: 048
     Dates: start: 20130402
  26. TYLENOL [Concomitant]
     Active Substance: ACETAMINOPHEN
     Indication: PRODUCT USED FOR UNKNOWN INDICATION
     Dosage: 160 MG/5ML, 20 ML EVERY 6 HOURS AS NEEDED
     Route: 048
  27. MOTRIN [Concomitant]
     Active Substance: IBUPROFEN
     Indication: PRODUCT USED FOR UNKNOWN INDICATION
     Dosage: 100 MG/5 ML
     Route: 065
  28. SIMETHICONE (DIMETHICONE) [Concomitant]
     Active Substance: DIMETHICONE
     Indication: PRODUCT USED FOR UNKNOWN INDICATION
     Dosage: 40 MG/0.6 ML
     Route: 065
  29. SODIUM CHLORIDE. [Concomitant]
     Active Substance: SODIUM CHLORIDE
     Indication: PRODUCT USED FOR UNKNOWN INDICATION
     Dosage: NEBU
     Route: 065
  30. DIASTAT ACUDIAL [Concomitant]
     Active Substance: DIAZEPAM
     Indication: SEIZURE CLUSTER
  31. FLONASE [Concomitant]
     Active Substance: FLUTICASONE PROPIONATE
     Indication: PRODUCT USED FOR UNKNOWN INDICATION
     Dosage: 50 MCG/ACTUATION
     Route: 065
  32. ADVIL [Concomitant]
     Active Substance: IBUPROFEN
     Indication: PRODUCT USED FOR UNKNOWN INDICATION
     Dosage: 100 MG/5 ML
     Route: 065
  33. ZONISAMIDE. [Concomitant]
     Active Substance: ZONISAMIDE
     Indication: PRODUCT USED FOR UNKNOWN INDICATION
     Dosage: VIA J-TUBE
     Route: 065

REACTIONS (2)
  - Pneumonia aspiration [Not Recovered/Not Resolved]
  - Off label use [Not Recovered/Not Resolved]

NARRATIVE: CASE EVENT DATE: 20130402
